FAERS Safety Report 8624579-9 (Version None)
Quarter: 2012Q3

REPORT INFORMATION
  Report Type: 
  Country: None (occurrence: None)
  Receive Date: 20120827
  Receipt Date: 20120816
  Transmission Date: 20120928
  Serious: Yes (Disabling)
  Sender: FDA-Public Use
  Company Number: CA-ASTRAZENECA-2012SE58105

PATIENT
  Age: 61 Year
  Sex: Female

DRUGS (8)
  1. LORAZEPAM [Concomitant]
     Indication: ANXIETY
     Route: 048
  2. TRAZODONE HYDROCHLORIDE [Concomitant]
     Route: 048
  3. CLONIDINE [Concomitant]
     Dosage: 0.1 MG, 6 -8 TIMES A DAY
     Route: 048
  4. ARIMIDEX [Suspect]
     Indication: BREAST CANCER
     Route: 048
     Dates: start: 20120620, end: 20120801
  5. ATORVASTATIN [Concomitant]
     Route: 048
  6. TRAMADOL HCL [Concomitant]
     Indication: MYALGIA
     Dosage: AS NEEDED
     Route: 048
  7. ACETAMINOPHEN [Concomitant]
     Indication: MYALGIA
     Dosage: AS NEEDED
     Route: 048
  8. PANTOPRAZOLE [Concomitant]
     Route: 048

REACTIONS (8)
  - WEIGHT DECREASED [None]
  - BLOOD PRESSURE INADEQUATELY CONTROLLED [None]
  - APHAGIA [None]
  - GAIT DISTURBANCE [None]
  - HEPATOMEGALY [None]
  - NAUSEA [None]
  - ARTHRALGIA [None]
  - BONE PAIN [None]
